FAERS Safety Report 4648442-3 (Version None)
Quarter: 2005Q2

REPORT INFORMATION
  Report Type: 
  Country: None (occurrence: None)
  Receive Date: 20050429
  Receipt Date: 20041215
  Transmission Date: 20051028
  Serious: Yes (Other)
  Sender: FDA-Public Use
  Company Number: PHNU2004DE04206

PATIENT
  Age: 64 Year
  Sex: Female
  Weight: 80 kg

DRUGS (6)
  1. CARBABETA - SLOW RELEASE [Suspect]
     Indication: EPILEPSY
     Dosage: UNK, UNK
     Route: 048
  2. HYDROCHLOROTHIAZIDE [Suspect]
     Indication: EPILEPSY
     Dosage: 25 MG/D
     Route: 048
     Dates: start: 20031219, end: 20041216
  3. MOXONIDINE [Concomitant]
     Indication: HYPERTENSION
     Dosage: 0.3 MG/D
     Route: 048
     Dates: start: 20040407
  4. DIOVAN [Suspect]
     Indication: HYPERTENSION
     Dosage: 160 MG/D
     Route: 048
     Dates: start: 20040824
  5. LAMICTAL [Concomitant]
     Indication: EPILEPSY
     Dosage: 300 MG/D
     Route: 048
  6. AMLODIPINE [Concomitant]
     Indication: HYPERTENSION
     Dosage: 5 MG/D
     Route: 048
     Dates: start: 20040407

REACTIONS (1)
  - HYPONATRAEMIA [None]
